FAERS Safety Report 5890619-3 (Version None)
Quarter: 2008Q3

REPORT INFORMATION
  Report Type: 
  Country: None (occurrence: None)
  Receive Date: 20080922
  Receipt Date: 20080620
  Transmission Date: 20090109
  Serious: No
  Sender: FDA-Public Use
  Company Number: US-BAYER-200824219NA

PATIENT
  Age: 64 Year
  Sex: Female

DRUGS (5)
  1. AVELOX [Suspect]
     Indication: INFECTION
     Dosage: TOTAL DAILY DOSE: 400 MG  UNIT DOSE: 400 MG
     Route: 048
     Dates: start: 20080522
  2. NASONEX [Suspect]
  3. CALCIUM GLUCONATE [Concomitant]
  4. VERAPAMIL [Concomitant]
  5. ATENOLOL [Concomitant]

REACTIONS (3)
  - ARTHRALGIA [None]
  - ARTHRITIS [None]
  - DYSPEPSIA [None]
